FAERS Safety Report 9004015 (Version 5)
Quarter: 2013Q2

REPORT INFORMATION
  Report Type: Report from Study
  Country: GB (occurrence: GB)
  Receive Date: 20130108
  Receipt Date: 20130514
  Transmission Date: 20140414
  Serious: Yes (Hospitalization)
  Sender: FDA-Public Use
  Company Number: GB-ROCHE-1176827

PATIENT
  Age: 47 Year
  Sex: Male
  Weight: 97.2 kg

DRUGS (7)
  1. VEMURAFENIB [Suspect]
     Indication: MALIGNANT MELANOMA
     Dosage: LAST DOSE PRIOR TO SAE: 30 DEC 2012
     Route: 048
     Dates: start: 20121227, end: 20130429
  2. DEXAMETHASONE [Concomitant]
     Route: 048
     Dates: start: 20121210, end: 20121230
  3. DEXAMETHASONE [Concomitant]
     Route: 048
     Dates: start: 20121231
  4. NOVORAPID [Concomitant]
     Route: 058
     Dates: start: 20121230, end: 20121230
  5. NOVORAPID [Concomitant]
     Route: 058
     Dates: start: 199801
  6. OMEPRAZOLE [Concomitant]
     Route: 048
     Dates: start: 20121210
  7. DUAC TOPICAL GEL [Concomitant]
     Route: 061
     Dates: start: 20130124

REACTIONS (1)
  - Muscular weakness [Recovering/Resolving]
